FAERS Safety Report 4970178-X (Version None)
Quarter: 2006Q2

REPORT INFORMATION
  Report Type: 
  Country: None (occurrence: None)
  Receive Date: 20060412
  Receipt Date: 20060403
  Transmission Date: 20061013
  Serious: Yes (Other)
  Sender: FDA-Public Use
  Company Number: US-JNJFOC-20060400641

PATIENT
  Sex: Male
  Weight: 57.61 kg

DRUGS (8)
  1. REMICADE [Suspect]
     Dosage: SEVENTH INFUSION
     Route: 042
  2. REMICADE [Suspect]
     Indication: RHEUMATOID ARTHRITIS
     Route: 042
  3. PREDNISONE [Concomitant]
  4. SULFASALAZINE [Concomitant]
  5. PERCOCET [Concomitant]
  6. PERCOCET [Concomitant]
  7. ASPIRIN [Concomitant]
  8. INSULIN [Concomitant]
     Indication: DIABETES MELLITUS

REACTIONS (4)
  - CHILLS [None]
  - HYPERGLYCAEMIA [None]
  - INFUSION RELATED REACTION [None]
  - PYREXIA [None]
